FAERS Safety Report 12804590 (Version 3)
Quarter: 2016Q4

REPORT INFORMATION
  Report Type: Spontaneous
  Country: US (occurrence: US)
  Receive Date: 20161003
  Receipt Date: 20161215
  Transmission Date: 20170207
  Serious: Yes (Other)
  Sender: FDA-Public Use
  Company Number: US-BAYER-2016-190587

PATIENT
  Age: 20 Year
  Sex: Female
  Weight: 95.69 kg

DRUGS (1)
  1. SKYLA [Suspect]
     Active Substance: LEVONORGESTREL
     Indication: CONTRACEPTION
     Dosage: 14 MCG/24HR, CONT
     Route: 015
     Dates: start: 20130708, end: 20160923

REACTIONS (4)
  - Pregnancy with contraceptive device [Unknown]
  - Device use issue [None]
  - Abortion spontaneous [Unknown]
  - Drug ineffective [None]

NARRATIVE: CASE EVENT DATE: 201609
